FAERS Safety Report 9352499 (Version 1)
Quarter: 2013Q2

REPORT INFORMATION
  Report Type: Spontaneous
  Country: US (occurrence: US)
  Receive Date: 20130617
  Receipt Date: 20130617
  Transmission Date: 20140414
  Serious: No
  Sender: FDA-Public Use
  Company Number: US-B.I. PHARMACEUTICALS,INC./RIDGEFIELD-2013-BI-16451BP

PATIENT
  Age: 61 Year
  Sex: Female
  Weight: 73 kg

DRUGS (8)
  1. COMBIVENT [Suspect]
     Indication: EMPHYSEMA
     Dosage: STRENGTH: 18 MCG / 103 MCG;
     Route: 055
     Dates: start: 1996
  2. COMBIVENT [Suspect]
     Indication: CHRONIC OBSTRUCTIVE PULMONARY DISEASE
     Dosage: STRENGTH: 20 MCG / 100 MCG;
     Route: 055
     Dates: start: 20130528
  3. KLONOPIN [Concomitant]
     Indication: ANXIETY
     Route: 048
  4. MORPHINE SR [Concomitant]
     Indication: PAIN
     Dosage: 120 MG
     Route: 048
  5. MORPHINE [Concomitant]
     Indication: BREAKTHROUGH PAIN
     Route: 048
  6. PROPRANOLOL [Concomitant]
     Indication: TREMOR
     Dosage: 40 MG
     Route: 048
  7. PROPRANOLOL [Concomitant]
     Indication: ANGINA PECTORIS
  8. AMBIEN [Concomitant]
     Indication: INSOMNIA
     Route: 048

REACTIONS (3)
  - Dyspnoea [Recovered/Resolved]
  - Nasopharyngitis [Recovered/Resolved]
  - Choking [Not Recovered/Not Resolved]
